FAERS Safety Report 19267918 (Version 4)
Quarter: 2023Q4

REPORT INFORMATION
  Report Type: Report from Study
  Country: CA (occurrence: CA)
  Receive Date: 20210517
  Receipt Date: 20231012
  Transmission Date: 20240109
  Serious: Yes (Other)
  Sender: FDA-Public Use
  Company Number: CA-PFIZER INC-2021493745

PATIENT
  Age: 60 Year
  Sex: Female
  Weight: 65 kg

DRUGS (22)
  1. RITUXIMAB [Suspect]
     Active Substance: RITUXIMAB
     Indication: Vasculitis
     Dosage: 1000 MG, 1 EVERY 15 DAYS
  2. RITUXIMAB [Suspect]
     Active Substance: RITUXIMAB
     Indication: Granulomatosis with polyangiitis
  3. RITUXIMAB [Suspect]
     Active Substance: RITUXIMAB
     Indication: Vasculitis
     Dosage: 500 MG
     Route: 042
  4. RITUXIMAB [Suspect]
     Active Substance: RITUXIMAB
     Indication: Granulomatosis with polyangiitis
  5. METHYLPREDNISOLONE SODIUM SUCCINATE [Suspect]
     Active Substance: METHYLPREDNISOLONE SODIUM SUCCINATE
     Indication: Premedication
     Dosage: 100 MG
     Route: 042
  6. DIPHENHYDRAMINE [Suspect]
     Active Substance: DIPHENHYDRAMINE
     Indication: Premedication
     Dosage: 50 MG
     Route: 048
  7. PREDNISONE [Suspect]
     Active Substance: PREDNISONE
     Route: 065
  8. ACETAMINOPHEN [Concomitant]
     Active Substance: ACETAMINOPHEN
     Indication: Premedication
     Dosage: 650 MG
     Route: 048
  9. ALENDRONATE SODIUM [Concomitant]
     Active Substance: ALENDRONATE SODIUM
  10. AMBROXOL HYDROCHLORIDE [Concomitant]
     Active Substance: AMBROXOL HYDROCHLORIDE
  11. AMLODIPINE [Concomitant]
     Active Substance: AMLODIPINE BESYLATE
     Indication: Blood pressure abnormal
  12. AMLODIPINE BESYLATE [Concomitant]
     Active Substance: AMLODIPINE BESYLATE
  13. ERGOCALCIFEROL [Concomitant]
     Active Substance: ERGOCALCIFEROL
  14. FOLIC ACID [Concomitant]
     Active Substance: FOLIC ACID
     Dosage: 5 MG, 1X/DAY
     Route: 048
  15. FOSAMAX [Concomitant]
     Active Substance: ALENDRONATE SODIUM
     Dosage: UNK
     Route: 048
  16. FOSAMAX [Concomitant]
     Active Substance: ALENDRONATE SODIUM
     Dosage: UNK
     Route: 048
  17. METHOTREXATE [Concomitant]
     Active Substance: METHOTREXATE
     Indication: Premedication
     Dosage: 25 MG, 1 EVERY 1 WEEKS
     Route: 058
  18. METHOTREXATE [Concomitant]
     Active Substance: METHOTREXATE
     Indication: Premedication
     Dosage: 100 MG
     Route: 042
  19. SEPTRA [Concomitant]
     Active Substance: SULFAMETHOXAZOLE\TRIMETHOPRIM
  20. CALCIUM [Concomitant]
     Active Substance: CALCIUM
  21. HYDROXYCHLOROQUINE [Concomitant]
     Active Substance: HYDROXYCHLOROQUINE
  22. SULFAMETHOXAZOLE [Concomitant]
     Active Substance: SULFAMETHOXAZOLE

REACTIONS (9)
  - Blood pressure diastolic abnormal [Not Recovered/Not Resolved]
  - Blood pressure increased [Not Recovered/Not Resolved]
  - Electrocardiogram QT prolonged [Not Recovered/Not Resolved]
  - Fatigue [Not Recovered/Not Resolved]
  - Oxygen saturation decreased [Not Recovered/Not Resolved]
  - Weight decreased [Not Recovered/Not Resolved]
  - Blood pressure systolic increased [Not Recovered/Not Resolved]
  - Blood pressure systolic abnormal [Not Recovered/Not Resolved]
  - Off label use [Not Recovered/Not Resolved]
